FAERS Safety Report 10033872 (Version 1)
Quarter: 2014Q1

REPORT INFORMATION
  Report Type: Spontaneous
  Country: GB (occurrence: GB)
  Receive Date: 20140325
  Receipt Date: 20140325
  Transmission Date: 20141002
  Serious: Yes (Hospitalization)
  Sender: FDA-Public Use
  Company Number: GB-DRREDDYS-GER/UKI/14/0039143

PATIENT
  Age: 39 Year
  Sex: Male

DRUGS (6)
  1. LAMOTRIGINE [Suspect]
     Indication: EPILEPSY
     Route: 048
  2. AMISULPRIDE [Suspect]
     Indication: SCHIZOPHRENIA
  3. CLOZARIL [Suspect]
     Indication: SCHIZOPHRENIA
     Route: 048
  4. CLOZARIL [Suspect]
     Route: 048
     Dates: start: 20041129
  5. METFORMIN [Suspect]
     Indication: DIABETES MELLITUS
  6. SIMVASTATIN [Suspect]
     Indication: HYPERCHOLESTEROLAEMIA

REACTIONS (3)
  - Aggression [Unknown]
  - Antipsychotic drug level decreased [Unknown]
  - Schizophrenia [Recovering/Resolving]
